FAERS Safety Report 4451812-X (Version None)
Quarter: 2004Q3

REPORT INFORMATION
  Report Type: 
  Country: None (occurrence: None)
  Receive Date: 20040813
  Receipt Date: 20040617
  Transmission Date: 20050211
  Serious: No
  Sender: FDA-Public Use
  Company Number: SO4-USA-03925-01

PATIENT

DRUGS (3)
  1. NAMENDA [Suspect]
  2. LIPITOR [Suspect]
  3. ARICEPT [Concomitant]

REACTIONS (1)
  - LIVER FUNCTION TEST ABNORMAL [None]
